FAERS Safety Report 5851168-1 (Version None)
Quarter: 2008Q3

REPORT INFORMATION
  Report Type: 
  Country: None (occurrence: None)
  Receive Date: 20080731
  Receipt Date: 20080415
  Transmission Date: 20090109
  Serious: No
  Sender: FDA-Public Use
  Company Number: US200804004206

PATIENT
  Age: 70 Year
  Sex: Male

DRUGS (2)
  1. BYETTA [Suspect]
     Indication: TYPE 2 DIABETES MELLITUS
     Dosage: 5 UG, 2/D SUBCUTANEOUS
     Route: 058
     Dates: start: 20070101
  2. GLIPIZIDE [Concomitant]

REACTIONS (5)
  - ABDOMINAL DISTENSION [None]
  - CONSTIPATION [None]
  - FAECES DISCOLOURED [None]
  - FLATULENCE [None]
  - STOMACH DISCOMFORT [None]
